FAERS Safety Report 13643900 (Version 1)
Quarter: 2017Q2

REPORT INFORMATION
  Report Type: Spontaneous
  Country: US (occurrence: US)
  Receive Date: 20170612
  Receipt Date: 20170612
  Transmission Date: 20170830
  Serious: Yes (Death)
  Sender: FDA-Public Use
  Company Number: US-CELGENEUS-USA-20170600875

PATIENT
  Age: 71 Year

DRUGS (4)
  1. VIDAZA [Suspect]
     Active Substance: AZACITIDINE
     Dosage: 75 MILLIGRAM/SQ. METER
     Route: 065
  2. RIGOSERTIB [Suspect]
     Active Substance: RIGOSERTIB
     Indication: ACUTE MYELOID LEUKAEMIA
     Route: 048
  3. VIDAZA [Suspect]
     Active Substance: AZACITIDINE
     Indication: ACUTE MYELOID LEUKAEMIA
     Route: 065
  4. RIGOSERTIB [Suspect]
     Active Substance: RIGOSERTIB
     Indication: MYELODYSPLASTIC SYNDROME

REACTIONS (3)
  - Treatment failure [Unknown]
  - Death [Fatal]
  - Acute myeloid leukaemia recurrent [Unknown]
